FAERS Safety Report 5246584-5 (Version None)
Quarter: 2007Q1

REPORT INFORMATION
  Report Type: 
  Country: None (occurrence: None)
  Receive Date: 20070226
  Receipt Date: 20070222
  Transmission Date: 20070707
  Serious: Yes (Death)
  Sender: FDA-Public Use
  Company Number: JP-BRISTOL-MYERS SQUIBB COMPANY-13670153

PATIENT
  Age: 56 Year
  Sex: Male

DRUGS (13)
  1. ARIPIPRAZOLE [Suspect]
     Indication: HALLUCINATION
     Dosage: 6/14/06 START AT 3MG; 7/13/06 INCREASED 24MG; 12/21/06 DECREASED 12MG; 12/28/06 DECREASED 6MG
     Route: 048
     Dates: start: 20060614
  2. ARIPIPRAZOLE [Suspect]
     Indication: DELUSION
     Dosage: 6/14/06 START AT 3MG; 7/13/06 INCREASED 24MG; 12/21/06 DECREASED 12MG; 12/28/06 DECREASED 6MG
     Route: 048
     Dates: start: 20060614
  3. CARBAMAZEPINE [Suspect]
     Indication: HALLUCINATION
     Route: 048
     Dates: start: 20050816, end: 20061228
  4. CARBAMAZEPINE [Suspect]
     Indication: DELUSION
     Route: 048
     Dates: start: 20050816, end: 20061228
  5. BIPERIDEN HYDROCHLORIDE TAB [Suspect]
     Route: 048
     Dates: start: 20050816, end: 20061228
  6. FLUNITRAZEPAM [Suspect]
     Route: 048
     Dates: start: 20050816, end: 20061228
  7. SENNOSIDE [Suspect]
     Route: 048
     Dates: start: 20050816, end: 20061228
  8. ZOTEPINE [Suspect]
     Indication: HALLUCINATION
     Dosage: INITIATED ON 9/28/06; INTERRUPTED ON 11/1/06; RESTARTED ON 12/28/06
     Route: 048
  9. ZOTEPINE [Suspect]
     Indication: DELUSION
     Dosage: INITIATED ON 9/28/06; INTERRUPTED ON 11/1/06; RESTARTED ON 12/28/06
     Route: 048
  10. CHLORPROMAZINE + PROMETHAZINE [Suspect]
     Route: 048
     Dates: start: 20060727, end: 20061228
  11. NITRAZEPAM [Suspect]
     Route: 048
     Dates: start: 20060921, end: 20061228
  12. AMOBARBITAL SODIUM [Suspect]
     Route: 048
     Dates: start: 20061005, end: 20061228
  13. BROMVALERYLUREA [Suspect]
     Route: 048
     Dates: start: 20061005, end: 20061228

REACTIONS (1)
  - CARDIAC FAILURE ACUTE [None]
